FAERS Safety Report 6202399-2 (Version None)
Quarter: 2009Q2

REPORT INFORMATION
  Report Type: 
  Country: None (occurrence: None)
  Receive Date: 20090520
  Receipt Date: 20090507
  Transmission Date: 20091009
  Serious: Yes (Hospitalization)
  Sender: FDA-Public Use
  Company Number: BAI_00011_2009

PATIENT
  Sex: Male
  Weight: 95.2554 kg

DRUGS (2)
  1. IPRATROPIUM BROMIDE [Suspect]
     Indication: CHRONIC OBSTRUCTIVE PULMONARY DISEASE
     Dosage: 3 TO 4 VIALS PER DAY RESPIRTORY (INHALATION)
     Route: 055
     Dates: start: 20081201
  2. ALBUTEROL SULATE [Suspect]
     Indication: CHRONIC OBSTRUCTIVE PULMONARY DISEASE
     Dosage: 3 TO 4 VIALS PER DAY RESPIRATORY (INHALATION)
     Route: 055
     Dates: start: 20081201

REACTIONS (5)
  - DRUG DOSE OMISSION [None]
  - DRUG LABEL CONFUSION [None]
  - DYSPNOEA [None]
  - INCORRECT DOSE ADMINISTERED [None]
  - MEDICATION ERROR [None]
